FAERS Safety Report 8935183 (Version 1)
Quarter: 2012Q4

REPORT INFORMATION
  Report Type: 
  Country: PH (occurrence: PH)
  Receive Date: 20121129
  Receipt Date: 20121129
  Transmission Date: 20130627
  Serious: Yes (Other)
  Sender: FDA-Public Use
  Company Number: PH-MERCK-1211PHL009839

PATIENT

DRUGS (1)
  1. JANUVIA [Suspect]
     Dosage: UNK
     Route: 048
     Dates: start: 20101121

REACTIONS (1)
  - Pancreatic carcinoma [Unknown]
